FAERS Safety Report 6904496-2 (Version None)
Quarter: 2010Q3

REPORT INFORMATION
  Report Type: 
  Country: None (occurrence: None)
  Receive Date: 20100804
  Receipt Date: 20090602
  Transmission Date: 20110219
  Serious: No
  Sender: FDA-Public Use
  Company Number: US-PFIZER INC-2009201046

PATIENT
  Sex: Female
  Weight: 92.079 kg

DRUGS (3)
  1. LYRICA [Suspect]
     Indication: FIBROMYALGIA
     Dosage: UNK
     Dates: start: 20090101
  2. LUNESTA [Concomitant]
     Indication: INSOMNIA
  3. ULTRAM [Concomitant]

REACTIONS (2)
  - FEAR [None]
  - WEIGHT INCREASED [None]
